FAERS Safety Report 21443834 (Version 2)
Quarter: 2022Q4

REPORT INFORMATION
  Report Type: Spontaneous
  Country: EG (occurrence: EG)
  Receive Date: 20221012
  Receipt Date: 20221024
  Transmission Date: 20230113
  Serious: Yes (Other)
  Sender: FDA-Public Use
  Company Number: EG-NOVOPROD-965283

PATIENT
  Age: 41 Year
  Sex: Male
  Weight: 81 kg

DRUGS (5)
  1. BENFOTIAMINE\CYANOCOBALAMIN\PYRIDOXINE HYDROCHLORIDE [Concomitant]
     Active Substance: BENFOTIAMINE\CYANOCOBALAMIN\PYRIDOXINE HYDROCHLORIDE
     Indication: Neuropathy peripheral
     Dosage: 1 TAB/DAY STARTED FROM MORE THAN 10 YEARS AGO
     Route: 048
  2. CALCIUM DOBESILATE [Concomitant]
     Active Substance: CALCIUM DOBESILATE
     Indication: Prophylaxis
     Dosage: 2 TAB/DAY STARTED FROM 7 YEARS AGO
     Route: 048
  3. GLUCOPHAGE [Concomitant]
     Active Substance: METFORMIN HYDROCHLORIDE
     Indication: Diabetes mellitus
     Dosage: 1000 MG, QD (8 YEARS AGO)
     Route: 048
  4. INSULIN HUMAN [Suspect]
     Active Substance: INSULIN HUMAN
     Indication: Diabetes mellitus
     Dosage: 60 IU, QD (40U MORNING- 20U NIGHT)
     Route: 058
     Dates: start: 2002
  5. DEPOVIT B12 [Concomitant]
     Indication: Product used for unknown indication
     Dosage: ONE AMPOULE/ WEEK (STARTED THIS WEEK)

REACTIONS (3)
  - Diabetic retinopathy [Unknown]
  - Hypoaesthesia [Not Recovered/Not Resolved]
  - Hyperglycaemia [Recovered/Resolved]
